FAERS Safety Report 15295386 (Version 1)
Quarter: 2018Q3

REPORT INFORMATION
  Report Type: Spontaneous
  Country: JP (occurrence: JP)
  Receive Date: 20180820
  Receipt Date: 20180820
  Transmission Date: 20181010
  Serious: Yes (Other)
  Sender: FDA-Public Use
  Company Number: PHHY2018JP071837

PATIENT
  Weight: 1.79 kg

DRUGS (9)
  1. REMIFENTANIL [Concomitant]
     Active Substance: REMIFENTANIL
     Indication: FOETAL EXPOSURE DURING PREGNANCY
     Dosage: MOTHER DOSE: 0.2 UG/KG
     Route: 064
  2. ROCURONIUM [Concomitant]
     Active Substance: ROCURONIUM BROMIDE
     Indication: FOETAL EXPOSURE DURING PREGNANCY
     Dosage: MOTHER DOSE: 60 MG
     Route: 064
  3. BETAMETHASONE. [Suspect]
     Active Substance: BETAMETHASONE
     Indication: FOETAL EXPOSURE DURING PREGNANCY
     Dosage: MOTHER DOSE: 12 MG
     Route: 064
  4. PHENOBARBITAL. [Concomitant]
     Active Substance: PHENOBARBITAL
     Indication: FOETAL EXPOSURE DURING PREGNANCY
     Dosage: MOTHER DOSE: 100 MG
     Route: 064
  5. THIAMYLAL [Concomitant]
     Active Substance: THIAMYLAL
     Indication: FOETAL EXPOSURE DURING PREGNANCY
     Dosage: MOTHER DOSE : 250 MG
     Route: 064
  6. OXYGEN. [Concomitant]
     Active Substance: OXYGEN
     Indication: SUPPORTIVE CARE
     Route: 065
  7. NICARDIPINE SANDOZ [Suspect]
     Active Substance: NICARDIPINE
     Indication: FOETAL EXPOSURE DURING PREGNANCY
     Dosage: MOTHER DOSE: 0.2 MG
     Route: 064
  8. PHENOBARBITAL. [Concomitant]
     Active Substance: PHENOBARBITAL
     Dosage: MOTHER DOSE: 100 MG
     Route: 064
  9. SEVOFLURANE. [Concomitant]
     Active Substance: SEVOFLURANE
     Indication: FOETAL EXPOSURE DURING PREGNANCY
     Dosage: MOTHER DOSE: 1 % CONCENTRAION
     Route: 064

REACTIONS (5)
  - Premature baby [Unknown]
  - Neonatal disorder [Recovered/Resolved]
  - Foetal exposure during pregnancy [Unknown]
  - Low birth weight baby [Unknown]
  - Tachypnoea [Recovered/Resolved]
